FAERS Safety Report 5398961-X (Version None)
Quarter: 2007Q3

REPORT INFORMATION
  Report Type: 
  Country: None (occurrence: None)
  Receive Date: 20070724
  Receipt Date: 20070724
  Transmission Date: 20080115
  Serious: Yes (Hospitalization)
  Sender: FDA-Public Use
  Company Number: None

PATIENT
  Age: 87 Year
  Sex: Male
  Weight: 61.2356 kg

DRUGS (2)
  1. VINORELBINE [Suspect]
     Indication: NON-SMALL CELL LUNG CANCER
     Dosage: 42MG IN NS 50ML IV
     Route: 042
     Dates: start: 20070425
  2. VINORELBINE [Suspect]
     Indication: NON-SMALL CELL LUNG CANCER
     Dosage: 42MG IN NS 50ML IV
     Route: 042
     Dates: start: 20070517

REACTIONS (2)
  - CHEST PAIN [None]
  - INFUSION RELATED REACTION [None]
